FAERS Safety Report 11835907 (Version 1)
Quarter: 2015Q4

REPORT INFORMATION
  Report Type: Spontaneous
  Country: US (occurrence: None)
  Receive Date: 20151214
  Receipt Date: 20151214
  Transmission Date: 20160305
  Serious: Yes (Hospitalization)
  Sender: FDA-Public Use
  Company Number: None

PATIENT
  Age: 63 Year
  Sex: Male
  Weight: 63.5 kg

DRUGS (1)
  1. DIVALPROEX [Suspect]
     Active Substance: DIVALPROEX SODIUM
     Indication: SCHIZOAFFECTIVE DISORDER
     Route: 048
     Dates: start: 20141119, end: 20150208

REACTIONS (15)
  - Hypersexuality [None]
  - Hepatic encephalopathy [None]
  - Toxicity to various agents [None]
  - Dysarthria [None]
  - Platelet count decreased [None]
  - Cognitive disorder [None]
  - Abnormal behaviour [None]
  - Electroencephalogram abnormal [None]
  - Ammonia increased [None]
  - Gaze palsy [None]
  - Liver disorder [None]
  - Transaminases increased [None]
  - Blood glucose decreased [None]
  - Delirium [None]
  - Sinus bradycardia [None]

NARRATIVE: CASE EVENT DATE: 20150211
